FAERS Safety Report 5397130-7 (Version None)
Quarter: 2007Q3

REPORT INFORMATION
  Report Type: 
  Country: None (occurrence: None)
  Receive Date: 20070723
  Receipt Date: 20070710
  Transmission Date: 20080115
  Serious: Yes (Hospitalization, Other)
  Sender: FDA-Public Use
  Company Number: 2007S1000250

PATIENT
  Age: 87 Year
  Sex: Male
  Weight: 80 kg

DRUGS (11)
  1. CUBICIN [Suspect]
     Indication: OSTEOMYELITIS CHRONIC
     Dosage: 4.4 MG/KG; Q24H; IV
     Route: 042
     Dates: start: 20061114, end: 20061211
  2. BACTRIM [Concomitant]
  3. CEFTRIAXONE [Concomitant]
  4. AZITHROMYCIN [Concomitant]
  5. LEVOFLOXACIN [Concomitant]
  6. LISINOPRIL [Concomitant]
  7. FERROUS SULFATE [Concomitant]
  8. COREG [Concomitant]
  9. LASIX [Concomitant]
  10. MAGNESIUM SULFATE [Concomitant]
  11. ASPIRIN [Concomitant]

REACTIONS (10)
  - BRONCHOALVEOLAR LAVAGE ABNORMAL [None]
  - CHEST PAIN [None]
  - DRUG INEFFECTIVE [None]
  - EJECTION FRACTION DECREASED [None]
  - EOSINOPHILIC PNEUMONIA CHRONIC [None]
  - LEFT VENTRICULAR DYSFUNCTION [None]
  - LUNG CONSOLIDATION [None]
  - PLEURAL EFFUSION [None]
  - PULMONARY EOSINOPHILIA [None]
  - TACHYPNOEA [None]
